FAERS Safety Report 23761815 (Version 2)
Quarter: 2024Q2

REPORT INFORMATION
  Report Type: Spontaneous
  Country: BR (occurrence: BR)
  Receive Date: 20240419
  Receipt Date: 20240423
  Transmission Date: 20240716
  Serious: Yes (Other)
  Sender: FDA-Public Use
  Company Number: BR-002147023-NVSC2024BR080831

PATIENT
  Sex: Female
  Weight: 79 kg

DRUGS (1)
  1. KISQALI [Suspect]
     Active Substance: RIBOCICLIB
     Indication: Breast cancer
     Dosage: 3 DOSAGE FORM (63 COATED TABLETS) (ONCE A DAY? FOR 21 DAYS AND A 7- DAY BREAK)
     Route: 065

REACTIONS (1)
  - Metastasis [Unknown]
